FAERS Safety Report 20709827 (Version 1)
Quarter: 2022Q2

REPORT INFORMATION
  Report Type: Spontaneous
  Country: GB (occurrence: GB)
  Receive Date: 20220414
  Receipt Date: 20220414
  Transmission Date: 20220721
  Serious: Yes (Hospitalization)
  Sender: FDA-Public Use
  Company Number: None

PATIENT
  Sex: Male

DRUGS (9)
  1. LORLATINIB [Suspect]
     Active Substance: LORLATINIB
     Dosage: UNK
  2. APIXABAN [Concomitant]
     Active Substance: APIXABAN
     Dosage: 2.5 MG, 2X/DAY
  3. CARBOCYSTEINE [Concomitant]
     Active Substance: CARBOCYSTEINE
     Dosage: 2 DF, 2X/DAY
  4. CODEINE [Concomitant]
     Active Substance: CODEINE
     Dosage: ONE OR TWO TO BE TAKEN EVERY FOUR HOURS WHEN NECESSARY
  5. COLCHICINE [Concomitant]
     Active Substance: COLCHICINE
     Dosage: 500 UG, 1X/DAY
  6. ROPINIROLE [Concomitant]
     Active Substance: ROPINIROLE
     Dosage: 1 MG, 3X/DAY
  7. EASYHALER SALBUTAMOL [Concomitant]
     Dosage: 100 MICROGRAMS/DOSE DRY POWDER INHALER 1-2 PUFFS AS REQUIRED
  8. SIMVASTATIN [Concomitant]
     Active Substance: SIMVASTATIN
     Dosage: 1 TABLET, EVERY NIGHT
  9. TRELEGY ELLIPTA [Concomitant]
     Active Substance: FLUTICASONE FUROATE\UMECLIDINIUM BROMIDE\VILANTEROL TRIFENATATE
     Dosage: 92MICROGRAMS/DOSE / 55MICROGRAMS/DOSE / 22MICROGRAMS/DOSE DRY POWDER INHALER  INHALE ONCE DAILY

REACTIONS (2)
  - Cardiotoxicity [Unknown]
  - Pneumonitis [Unknown]
